FAERS Safety Report 15727664 (Version 1)
Quarter: 2018Q4

REPORT INFORMATION
  Report Type: Spontaneous
  Country: US (occurrence: US)
  Receive Date: 20181217
  Receipt Date: 20181217
  Transmission Date: 20190205
  Serious: No
  Sender: FDA-Public Use
  Company Number: US-NOVEN PHARMACEUTICALS, INC.-US2018000363

PATIENT

DRUGS (3)
  1. MINIVELLE [Suspect]
     Active Substance: ESTRADIOL
     Indication: HYSTEROSALPINGO-OOPHORECTOMY
     Dosage: 0.1 MG, UNKNOWN
     Route: 062
     Dates: end: 201805
  2. TESTOSTERONE. [Concomitant]
     Active Substance: TESTOSTERONE
     Dosage: UNK, EVENING
  3. MINIVELLE [Suspect]
     Active Substance: ESTRADIOL
     Dosage: USING TWO PATCHES (0.1 MG + 0.05 MG) TOGETHER, UNKNOWN
     Route: 062
     Dates: start: 201805

REACTIONS (6)
  - Product quality issue [Not Recovered/Not Resolved]
  - Off label use [Not Recovered/Not Resolved]
  - Product adhesion issue [Not Recovered/Not Resolved]
  - Wrong technique in product usage process [Not Recovered/Not Resolved]
  - Prescribed overdose [Not Recovered/Not Resolved]
  - Blood oestrogen decreased [Not Recovered/Not Resolved]

NARRATIVE: CASE EVENT DATE: 2018
